FAERS Safety Report 10483656 (Version 1)
Quarter: 2014Q3

REPORT INFORMATION
  Report Type: Spontaneous
  Country: IT (occurrence: None)
  Receive Date: 20140926
  Receipt Date: 20140926
  Transmission Date: 20150326
  Serious: Yes (Other)
  Sender: FDA-Public Use
  Company Number: 2430504

PATIENT
  Age: 68 Year
  Sex: Female

DRUGS (10)
  1. TRIMETON [Concomitant]
     Active Substance: CHLORPHENIRAMINE MALEATE
  2. CLEXANE [Concomitant]
     Active Substance: ENOXAPARIN SODIUM
  3. REPAGLINIDE. [Concomitant]
     Active Substance: REPAGLINIDE
  4. PACLITAXEL. [Suspect]
     Active Substance: PACLITAXEL
     Indication: LUNG ADENOCARCINOMA
     Dosage: 257.3 MG CYCLICAL, INTRAVENOUS
     Route: 042
     Dates: start: 20140414, end: 20140414
  5. ONDANSETRON [Concomitant]
     Active Substance: ONDANSETRON
  6. RANITIDINE [Concomitant]
     Active Substance: RANITIDINE\RANITIDINE HYDROCHLORIDE
  7. NIFEREX [Concomitant]
     Active Substance: IRON\POLYSACCHARIDES
  8. SALINE [Concomitant]
     Active Substance: SODIUM CHLORIDE
  9. PANTOPRAZOLE [Concomitant]
     Active Substance: PANTOPRAZOLE SODIUM
  10. DEXAMETHASONE. [Concomitant]
     Active Substance: DEXAMETHASONE

REACTIONS (2)
  - Paraesthesia [None]
  - Feeling hot [None]
